FAERS Safety Report 7090138-5 (Version None)
Quarter: 2010Q4

REPORT INFORMATION
  Report Type: 
  Country: None (occurrence: None)
  Receive Date: 20101105
  Receipt Date: 20101105
  Transmission Date: 20110411
  Serious: Yes (Other)
  Sender: FDA-Public Use
  Company Number: None

PATIENT
  Sex: Female
  Weight: 65.7716 kg

DRUGS (1)
  1. NASACORT AQ [Suspect]
     Indication: HYPERSENSITIVITY
     Dosage: TWICE IN EACH NOSTRIL DAILY
     Dates: start: 20090801, end: 20100901

REACTIONS (1)
  - ANOSMIA [None]
